FAERS Safety Report 24110876 (Version 4)
Quarter: 2024Q4

REPORT INFORMATION
  Report Type: Spontaneous
  Country: US (occurrence: US)
  Receive Date: 20240718
  Receipt Date: 20241216
  Transmission Date: 20250114
  Serious: No
  Sender: SANOFI AVENTIS
  Company Number: US-SA-SAC20240716000093

PATIENT
  Age: 69 Year
  Sex: Male

DRUGS (3)
  1. ALTUVIIIO [Suspect]
     Active Substance: EFANESOCTOCOG ALFA
     Indication: Haemorrhage prophylaxis
     Dosage: 2730 UNITS/4550 UNITS
     Route: 042
  2. ALTUVIIIO [Suspect]
     Active Substance: EFANESOCTOCOG ALFA
     Dosage: 4550 U (+/-10%), QW
     Route: 042
  3. ALTUVIIIO [Suspect]
     Active Substance: EFANESOCTOCOG ALFA
     Dosage: 4550 U (+/-10%), PRN (EVERY 3 DAYS AS NEEDED FOR MINOR/MAJOR BLEEDING)
     Route: 042

REACTIONS (6)
  - Tooth loss [Unknown]
  - Gingival bleeding [Unknown]
  - Tongue biting [Unknown]
  - Tongue haemorrhage [Unknown]
  - Haemorrhage [Unknown]
  - Arthralgia [Recovered/Resolved]

NARRATIVE: CASE EVENT DATE: 20240703
